FAERS Safety Report 8277872-6 (Version None)
Quarter: 2012Q2

REPORT INFORMATION
  Report Type: 
  Country: None (occurrence: None)
  Receive Date: 20120412
  Receipt Date: 20120409
  Transmission Date: 20120825
  Serious: Yes (Other)
  Sender: FDA-Public Use
  Company Number: JP-PFIZER INC-2012067938

PATIENT
  Age: 76 Year
  Sex: Male
  Weight: 65.4 kg

DRUGS (1)
  1. LYRICA [Suspect]
     Dosage: 75 MG/100 MG, TWICE DAILY
     Route: 048
     Dates: start: 20100708, end: 20120308

REACTIONS (1)
  - DIPLOPIA [None]
